FAERS Safety Report 8157837 (Version 2)
Quarter: 2015Q3

REPORT INFORMATION
  Report Type: Spontaneous
  Country: US (occurrence: US)
  Receive Date: 20110927
  Receipt Date: 20150708
  Transmission Date: 20151125
  Serious: Yes (Hospitalization, Other)
  Sender: FDA-Public Use
  Company Number: US-GLAXOSMITHKLINE-A0937088A

PATIENT
  Age: 60 Year
  Sex: Female

DRUGS (8)
  1. LAMICTAL XR [Suspect]
     Active Substance: LAMOTRIGINE
     Indication: SEIZURE
     Dosage: 200 MG, TID
     Route: 048
     Dates: start: 1990
  2. TEGRETOL [Concomitant]
     Active Substance: CARBAMAZEPINE
  3. OXYBUTYNIN [Concomitant]
     Active Substance: OXYBUTYNIN
  4. LAMICTAL [Suspect]
     Active Substance: LAMOTRIGINE
     Indication: STURGE-WEBER SYNDROME
     Route: 048
  5. LAMICTAL XR [Suspect]
     Active Substance: LAMOTRIGINE
     Dosage: 200 MG, QID
     Route: 048
  6. PHENOBARBITAL. [Concomitant]
     Active Substance: PHENOBARBITAL
  7. LAMOTRIGINE PROLONGED-RELEASE TABLET [Suspect]
     Active Substance: LAMOTRIGINE
     Indication: STURGE-WEBER SYNDROME
     Route: 048
  8. RESTASIS [Concomitant]
     Active Substance: CYCLOSPORINE

REACTIONS (5)
  - Seizure [Unknown]
  - Diplopia [Unknown]
  - Gait disturbance [Not Recovered/Not Resolved]
  - Mobility decreased [Recovering/Resolving]
  - Vision blurred [Recovering/Resolving]

NARRATIVE: CASE EVENT DATE: 20150501
